FAERS Safety Report 7275314-0 (Version None)
Quarter: 2011Q1

REPORT INFORMATION
  Report Type: 
  Country: None (occurrence: None)
  Receive Date: 20110204
  Receipt Date: 20110125
  Transmission Date: 20110831
  Serious: Yes (Other)
  Sender: FDA-Public Use
  Company Number: PHHY2011AU07399

PATIENT
  Sex: Male

DRUGS (1)
  1. ACLASTA [Suspect]

REACTIONS (1)
  - JOINT EFFUSION [None]
